FAERS Safety Report 8513329-2 (Version None)
Quarter: 2012Q3

REPORT INFORMATION
  Report Type: 
  Country: None (occurrence: None)
  Receive Date: 20120716
  Receipt Date: 20120712
  Transmission Date: 20120928
  Serious: Yes (Other)
  Sender: FDA-Public Use
  Company Number: PHEH2012US009392

PATIENT
  Sex: Female

DRUGS (1)
  1. TEGRETOL [Suspect]
     Indication: CONVULSION
     Dosage: 300 MG, TID

REACTIONS (7)
  - MUSCULOSKELETAL PAIN [None]
  - COMPLEX REGIONAL PAIN SYNDROME [None]
  - INFECTION PARASITIC [None]
  - HERPES ZOSTER [None]
  - CONVULSION [None]
  - GASTRIC PH DECREASED [None]
  - NERVE INJURY [None]
